FAERS Safety Report 7669718-1 (Version None)
Quarter: 2011Q3

REPORT INFORMATION
  Report Type: 
  Country: None (occurrence: None)
  Receive Date: 20110808
  Receipt Date: 20110729
  Transmission Date: 20111222
  Serious: Yes (Other)
  Sender: FDA-Public Use
  Company Number: GB-ASTRAZENECA-2011SE45461

PATIENT
  Age: 63 Year
  Sex: Female
  Weight: 85.7 kg

DRUGS (10)
  1. LISINOPRIL [Suspect]
     Route: 048
     Dates: start: 20110707
  2. PAROXETINE HCL [Concomitant]
     Dates: start: 20110420
  3. RILUZOLE [Concomitant]
     Dates: start: 20110420
  4. ASPIRIN [Concomitant]
     Dates: start: 20110420
  5. NORTRIPTYLINE HCL [Concomitant]
     Dates: start: 20110420
  6. LISINOPRIL [Suspect]
     Route: 048
     Dates: start: 20110426
  7. AMILORIDE HYDROCHLORIDE AND HYDROCHLOROTHIAZIDE [Concomitant]
     Dates: start: 20110420
  8. QUININE SULFATE [Concomitant]
     Dates: start: 20110420
  9. SIMVASTATIN [Concomitant]
     Dates: start: 20110420
  10. TOLTERODINE TARTRATE [Concomitant]
     Dates: start: 20110420

REACTIONS (1)
  - BLOOD CREATINE INCREASED [None]
